FAERS Safety Report 7366310-3 (Version None)
Quarter: 2011Q1

REPORT INFORMATION
  Report Type: 
  Country: None (occurrence: None)
  Receive Date: 20110322
  Receipt Date: 20110308
  Transmission Date: 20110831
  Serious: Yes (Hospitalization)
  Sender: FDA-Public Use
  Company Number: US-JNJFOC-20100508743

PATIENT
  Sex: Male
  Weight: 48.4 kg

DRUGS (7)
  1. MERCAPTOPURINE [Concomitant]
  2. REMICADE [Suspect]
     Indication: INFLAMMATORY BOWEL DISEASE
     Dosage: TOTAL 2 DOSES
     Route: 042
  3. REMICADE [Suspect]
     Route: 042
  4. IRON [Concomitant]
  5. PROBIOTIC [Concomitant]
  6. SULFASALAZINE [Concomitant]
  7. PREVACID [Concomitant]

REACTIONS (3)
  - CROHN'S DISEASE [None]
  - FISTULA [None]
  - GASTROINTESTINAL HAEMORRHAGE [None]
